FAERS Safety Report 20684161 (Version 1)
Quarter: 2022Q2

REPORT INFORMATION
  Report Type: Spontaneous
  Country: US (occurrence: None)
  Receive Date: 20220405
  Receipt Date: 20220405
  Transmission Date: 20220721
  Serious: Yes (Hospitalization)
  Sender: FDA-Public Use
  Company Number: None

PATIENT
  Sex: Male
  Weight: 69.85 kg

DRUGS (6)
  1. ERLEADA [Suspect]
     Active Substance: APALUTAMIDE
     Indication: Prostate cancer
     Dosage: FREQUENCY : DAILY;?
     Route: 048
     Dates: start: 202203
  2. GLIPIZIDE [Concomitant]
     Active Substance: GLIPIZIDE
  3. HYDROCODONE- ACETAMINOPHEN 7.5-300 MG [Concomitant]
  4. LISINOPRIL [Concomitant]
     Active Substance: LISINOPRIL
  5. LOVASTATIN [Concomitant]
     Active Substance: LOVASTATIN
  6. METFORMIN HCI 500 MG [Concomitant]

REACTIONS (4)
  - Constipation [None]
  - Hyperhidrosis [None]
  - Diarrhoea [None]
  - Therapy interrupted [None]
